FAERS Safety Report 17359020 (Version 1)
Quarter: 2020Q1

REPORT INFORMATION
  Report Type: Other
  Country: DK (occurrence: DK)
  Receive Date: 20200202
  Receipt Date: 20200202
  Transmission Date: 20200409
  Serious: Yes (Other)
  Sender: FDA-Public Use
  Company Number: DK-CELLTRION INC.-2020DK018280

PATIENT

DRUGS (6)
  1. REMSIMA [Suspect]
     Active Substance: INFLIXIMAB
     Indication: RHEUMATOID ARTHRITIS
     Dosage: UNK
     Route: 042
  2. INFLECTRA [Suspect]
     Active Substance: INFLIXIMAB-DYYB
     Indication: RHEUMATOID ARTHRITIS
     Dosage: UNK
     Route: 042
  3. REMICADE [Suspect]
     Active Substance: INFLIXIMAB
     Indication: RHEUMATOID ARTHRITIS
     Dosage: UNK
     Route: 042
  4. IMUREL [AZATHIOPRINE] [Suspect]
     Active Substance: AZATHIOPRINE
     Indication: CHORIORETINITIS
     Dosage: UNK
     Route: 048
  5. METHOTREXATE. [Suspect]
     Active Substance: METHOTREXATE
     Indication: CHORIORETINITIS
     Dosage: 17.5 MG, 1/WEEK
     Route: 048
     Dates: start: 20140429
  6. SANDIMMUN NEORAL [Suspect]
     Active Substance: CYCLOSPORINE
     Indication: CHORIORETINITIS
     Dosage: UNK
     Route: 048

REACTIONS (1)
  - Bladder cancer [Not Recovered/Not Resolved]

NARRATIVE: CASE EVENT DATE: 20160901
